FAERS Safety Report 9345884 (Version 1)
Quarter: 2013Q2

REPORT INFORMATION
  Report Type: Spontaneous
  Country: FR (occurrence: FR)
  Receive Date: 20130613
  Receipt Date: 20130613
  Transmission Date: 20140414
  Serious: Yes (Hospitalization)
  Sender: FDA-Public Use
  Company Number: FR-PFIZER INC-2013174772

PATIENT
  Age: 46 Year
  Sex: Male

DRUGS (9)
  1. ALPRESS [Suspect]
     Indication: HYPERTENSION
     Dosage: 5 MG, UNK
     Route: 048
     Dates: end: 20130419
  2. SODIUM BICARBONATE [Suspect]
     Indication: NEPHROANGIOSCLEROSIS
     Dosage: UNK
     Route: 048
     Dates: start: 201303, end: 20130419
  3. RASILEZ HCT [Suspect]
     Indication: HYPERTENSION
     Dosage: 300MG/25MG, 1 DF, 1X/DAY
     Route: 048
     Dates: end: 20130419
  4. COVERAM [Suspect]
     Indication: HYPERTENSION
     Dosage: 10MG/10MG, 1 DF, 1X/DAY
     Route: 048
     Dates: end: 20130419
  5. TEMERIT [Concomitant]
     Dosage: UNK
  6. INEGY [Concomitant]
     Dosage: UNK
  7. ALLOPURINOL [Concomitant]
     Dosage: UNK
  8. RENVELA [Concomitant]
     Dosage: UNK
  9. UVEDOSE [Concomitant]
     Dosage: UNK

REACTIONS (2)
  - Renal failure acute [Recovering/Resolving]
  - Diarrhoea [Recovering/Resolving]
